FAERS Safety Report 6754845-3 (Version None)
Quarter: 2010Q2

REPORT INFORMATION
  Report Type: 
  Country: None (occurrence: None)
  Receive Date: 20100603
  Receipt Date: 20100601
  Transmission Date: 20101027
  Serious: Yes (Hospitalization)
  Sender: FDA-Public Use
  Company Number: US-MERCK-1003USA02289

PATIENT
  Age: 71 Year
  Sex: Female
  Weight: 60 kg

DRUGS (5)
  1. FOSAMAX [Suspect]
     Indication: OSTEOPOROSIS
     Route: 048
     Dates: start: 20011025, end: 20081018
  2. LIPITOR [Concomitant]
     Route: 065
  3. HYDROCHLOROTHIAZIDE [Concomitant]
     Indication: HYPERTENSION
     Route: 065
     Dates: end: 20051201
  4. HYDROCHLOROTHIAZIDE [Concomitant]
     Route: 065
     Dates: start: 20051201
  5. MIACALCIN [Concomitant]
     Route: 065

REACTIONS (18)
  - ACQUIRED OESOPHAGEAL WEB [None]
  - CATARACT [None]
  - CEREBRAL ISCHAEMIA [None]
  - CHOLELITHIASIS [None]
  - CYST [None]
  - DIVERTICULITIS [None]
  - FALL [None]
  - FEMUR FRACTURE [None]
  - GASTRITIS [None]
  - GASTROOESOPHAGEAL REFLUX DISEASE [None]
  - HAEMOGLOBIN DECREASED [None]
  - HERPES ZOSTER [None]
  - HIATUS HERNIA [None]
  - IODINE UPTAKE INCREASED [None]
  - OSTEOARTHRITIS [None]
  - PANCREATIC CYST [None]
  - SINUS DISORDER [None]
  - SYNCOPE [None]
